FAERS Safety Report 5939448-2 (Version None)
Quarter: 2008Q4

REPORT INFORMATION
  Report Type: 
  Country: None (occurrence: None)
  Receive Date: 20081029
  Receipt Date: 20081013
  Transmission Date: 20090506
  Serious: Yes (Hospitalization)
  Sender: FDA-Public Use
  Company Number: DSA_32471_2008

PATIENT
  Sex: Male

DRUGS (3)
  1. LORAZEPAM [Suspect]
     Dosage: 6 MG LX, NOT THE PRESCRIBED AMOUNT, ORAL
     Route: 048
     Dates: start: 20080924, end: 20080924
  2. VALPROIC ACID [Suspect]
     Indication: DRUG USE FOR UNKNOWN INDICATION
     Dosage: 1000 MG QD ORAL
     Route: 048
  3. SEROQUEL [Suspect]
     Indication: DRUG USE FOR UNKNOWN INDICATION
     Dosage: 400 MG TID ORAL
     Route: 048

REACTIONS (4)
  - DEPRESSED LEVEL OF CONSCIOUSNESS [None]
  - DRUG ABUSE [None]
  - DYSARTHRIA [None]
  - TACHYCARDIA [None]
